FAERS Safety Report 6202886-7 (Version None)
Quarter: 2009Q2

REPORT INFORMATION
  Report Type: 
  Country: None (occurrence: None)
  Receive Date: 20090520
  Receipt Date: 20090507
  Transmission Date: 20091009
  Serious: Yes (Life-Threatening, Hospitalization, Other)
  Sender: FDA-Public Use
  Company Number: 2009AL002402

PATIENT
  Age: 49 Year
  Sex: Male

DRUGS (6)
  1. GABAPENTIN [Suspect]
     Indication: DIABETIC NEUROPATHY
     Dosage: 1 DF; QD; PO
     Route: 048
     Dates: start: 20090304, end: 20090312
  2. CANDESARTAN [Concomitant]
  3. HUMALOG [Concomitant]
  4. SIMVASTATIN [Concomitant]
  5. ACETYLSALICYLIC ACID SRT [Concomitant]
  6. AVIVA [Concomitant]

REACTIONS (2)
  - IMPLANTABLE DEFIBRILLATOR MALFUNCTION [None]
  - VENTRICULAR TACHYCARDIA [None]
